FAERS Safety Report 8786359 (Version 2)
Quarter: 2012Q4

REPORT INFORMATION
  Report Type: 
  Country: CH (occurrence: CH)
  Receive Date: 20120914
  Receipt Date: 20120925
  Transmission Date: 20130627
  Serious: Yes (Disabling)
  Sender: FDA-Public Use
  Company Number: CH-PFIZER INC-2012225247

PATIENT
  Age: 80 Year
  Sex: Female

DRUGS (3)
  1. SORTIS [Suspect]
     Dosage: 40 mg, 1x/day
     Route: 048
  2. OLMETEC [Suspect]
     Indication: ESSENTIAL HYPERTENSION
     Dosage: 40 mg, 1x/day
     Route: 048
     Dates: start: 201106
  3. HYGROTON [Suspect]
     Indication: ESSENTIAL HYPERTENSION
     Dosage: 25 mg, 1x/day
     Route: 048
     Dates: start: 201202

REACTIONS (2)
  - Dysaesthesia [Unknown]
  - Paraesthesia [Unknown]
